FAERS Safety Report 7433882-X (Version None)
Quarter: 2011Q2

REPORT INFORMATION
  Report Type: 
  Country: None (occurrence: None)
  Receive Date: 20110425
  Receipt Date: 20090814
  Transmission Date: 20111010
  Serious: No
  Sender: FDA-Public Use
  Company Number: 2009BI025891

PATIENT
  Sex: Male

DRUGS (1)
  1. TYSABRI [Suspect]
     Indication: MULTIPLE SCLEROSIS
     Route: 042
     Dates: start: 20080328

REACTIONS (4)
  - VISUAL IMPAIRMENT [None]
  - MENTAL IMPAIRMENT [None]
  - ASTHENIA [None]
  - FATIGUE [None]
